FAERS Safety Report 20610833 (Version 2)
Quarter: 2022Q1

REPORT INFORMATION
  Report Type: Spontaneous
  Country: CN (occurrence: None)
  Receive Date: 20220318
  Receipt Date: 20220323
  Transmission Date: 20220423
  Serious: Yes (Other)
  Sender: FDA-Public Use
  Company Number: 2022A111475

PATIENT
  Age: 25497 Day
  Sex: Male
  Weight: 87 kg

DRUGS (2)
  1. PULMICORT RESPULES [Suspect]
     Active Substance: BUDESONIDE
     Indication: Pneumothorax
     Route: 055
     Dates: start: 20220208, end: 20220210
  2. BRICANYL [Suspect]
     Active Substance: TERBUTALINE SULFATE
     Indication: Pneumothorax
     Route: 055
     Dates: start: 20220208, end: 20220210

REACTIONS (1)
  - Hepatic function abnormal [Recovering/Resolving]

NARRATIVE: CASE EVENT DATE: 20220210
